FAERS Safety Report 25563512 (Version 1)
Quarter: 2025Q3

REPORT INFORMATION
  Report Type: Spontaneous
  Country: US (occurrence: US)
  Receive Date: 20250716
  Receipt Date: 20250716
  Transmission Date: 20251021
  Serious: No
  Sender: IPSEN BIOPHARMACEUTICALS, INC.
  Company Number: US-IPSEN Group, Research and Development-2025-16869

PATIENT
  Sex: Female

DRUGS (6)
  1. IQIRVO [Suspect]
     Active Substance: ELAFIBRANOR
     Indication: Primary biliary cholangitis
  2. ASPIRIN [Concomitant]
     Active Substance: ASPIRIN
  3. ACIPHEX [Concomitant]
     Active Substance: RABEPRAZOLE SODIUM
  4. URSODIOL [Concomitant]
     Active Substance: URSODIOL
  5. FAMOTIDINE [Concomitant]
     Active Substance: FAMOTIDINE
  6. ZOLPIDEM TARTRATE [Concomitant]
     Active Substance: ZOLPIDEM TARTRATE

REACTIONS (1)
  - Abdominal discomfort [Unknown]
